FAERS Safety Report 8252889-6 (Version None)
Quarter: 2012Q2

REPORT INFORMATION
  Report Type: 
  Country: None (occurrence: None)
  Receive Date: 20120402
  Receipt Date: 20120125
  Transmission Date: 20120825
  Serious: No
  Sender: FDA-Public Use
  Company Number: US-ABBOTT-12P-163-0898005-00

PATIENT
  Sex: Male
  Weight: 87.622 kg

DRUGS (6)
  1. GLIMEPIRIDE [Concomitant]
     Indication: DIABETES MELLITUS
  2. TRICOR [Concomitant]
     Indication: BLOOD CHOLESTEROL
  3. ANDROGEL [Suspect]
     Indication: BLOOD TESTOSTERONE DECREASED
     Dosage: 30 GM BOTTLE  1%
     Dates: start: 20120108, end: 20120113
  4. METFORMIN HCL [Concomitant]
     Indication: DIABETES MELLITUS
  5. FLOMAX [Concomitant]
     Indication: PRODUCT USED FOR UNKNOWN INDICATION
  6. CRESTOR [Concomitant]
     Indication: BLOOD CHOLESTEROL

REACTIONS (1)
  - LIP SWELLING [None]
